FAERS Safety Report 23171090 (Version 1)
Quarter: 2023Q4

REPORT INFORMATION
  Report Type: Spontaneous
  Country: US (occurrence: None)
  Receive Date: 20231110
  Receipt Date: 20231110
  Transmission Date: 20240110
  Serious: Yes (Hospitalization)
  Sender: FDA-Public Use
  Company Number: None

PATIENT
  Sex: Male
  Weight: 82.3 kg

DRUGS (4)
  1. FLUOROURACIL [Suspect]
     Active Substance: FLUOROURACIL
  2. CAMPTOSAR [Concomitant]
     Active Substance: IRINOTECAN HYDROCHLORIDE
  3. LEUCOVORIN CALCIUM [Concomitant]
  4. OXALIPLATIN (ELOXATIN) [Concomitant]

REACTIONS (4)
  - Dehydration [None]
  - Blood urea increased [None]
  - Blood creatinine increased [None]
  - Stoma prolapse [None]

NARRATIVE: CASE EVENT DATE: 20231023
